FAERS Safety Report 7411349-2 (Version None)
Quarter: 2011Q2

REPORT INFORMATION
  Report Type: 
  Country: None (occurrence: None)
  Receive Date: 20110413
  Receipt Date: 20100621
  Transmission Date: 20111010
  Serious: Yes (Hospitalization, Other)
  Sender: FDA-Public Use
  Company Number: US-BRISTOL-MYERS SQUIBB COMPANY-15159098

PATIENT
  Age: 54 Year
  Sex: Male
  Weight: 168 kg

DRUGS (3)
  1. ERBITUX [Suspect]
     Indication: TONSIL CANCER
     Dates: start: 20100609, end: 20100601
  2. RADIATION THERAPY [Concomitant]
  3. BENADRYL [Concomitant]
     Indication: PREMEDICATION

REACTIONS (4)
  - CHEST PAIN [None]
  - LOSS OF CONSCIOUSNESS [None]
  - PRURITUS [None]
  - LIP SWELLING [None]
